FAERS Safety Report 5499192-5 (Version None)
Quarter: 2007Q4

REPORT INFORMATION
  Report Type: 
  Country: None (occurrence: None)
  Receive Date: 20071026
  Receipt Date: 20071015
  Transmission Date: 20080405
  Serious: Yes (Hospitalization)
  Sender: FDA-Public Use
  Company Number: FR-AVENTIS-200713306FR

PATIENT
  Age: 94 Year
  Sex: Female

DRUGS (10)
  1. LASIX [Suspect]
     Route: 048
     Dates: start: 20070324, end: 20070329
  2. ORBENINE [Suspect]
     Indication: OSTEITIS
     Route: 042
     Dates: start: 20070321, end: 20070322
  3. ORBENINE [Suspect]
     Route: 048
     Dates: start: 20070323, end: 20070406
  4. ORBENINE [Suspect]
     Route: 048
     Dates: start: 20070410
  5. SEVREDOL [Suspect]
     Indication: BONE PAIN
     Route: 048
     Dates: end: 20070417
  6. SKENAN [Suspect]
     Indication: BONE PAIN
     Route: 048
     Dates: start: 20070314, end: 20070328
  7. DALACINE [Suspect]
     Route: 048
     Dates: start: 20070321
  8. DIFFU K [Suspect]
     Route: 048
     Dates: start: 20070325
  9. TAZOCILLINE [Concomitant]
     Indication: OSTEITIS
     Dates: start: 20070320, end: 20070320
  10. CIFLOX                             /00697201/ [Concomitant]
     Dates: start: 20070320, end: 20070320

REACTIONS (1)
  - CONFUSIONAL STATE [None]
